FAERS Safety Report 8595017 (Version 4)
Quarter: 2012Q4

REPORT INFORMATION
  Report Type: 
  Country: US (occurrence: US)
  Receive Date: 20120604
  Receipt Date: 20121012
  Transmission Date: 20130627
  Serious: Yes (Hospitalization, Other)
  Sender: FDA-Public Use
  Company Number: US-ASTRAZENECA-2012SE19485

PATIENT
  Age: 52 Year
  Sex: Female
  Weight: 74.8 kg

DRUGS (10)
  1. NEXIUM [Suspect]
     Indication: GASTROOESOPHAGEAL REFLUX DISEASE
     Route: 048
     Dates: start: 1992
  2. NEXIUM [Interacting]
     Indication: GASTRIC ULCER
     Route: 048
     Dates: start: 1992
  3. NEXIUM [Interacting]
     Indication: GASTROOESOPHAGEAL REFLUX DISEASE
     Dosage: GENERIC
     Route: 048
  4. NEXIUM [Interacting]
     Indication: GASTRIC ULCER
     Dosage: GENERIC
     Route: 048
  5. NEXIUM [Interacting]
     Indication: GASTROOESOPHAGEAL REFLUX DISEASE
     Route: 048
  6. NEXIUM [Interacting]
     Indication: GASTRIC ULCER
     Route: 048
  7. PRILOSEC [Interacting]
     Route: 048
  8. BLOOD PRESSURE MEDICATION [Interacting]
     Indication: BLOOD PRESSURE ABNORMAL
     Route: 065
  9. PRILOSEC OTC [Suspect]
     Route: 048
  10. CRESTOR [Suspect]
     Route: 048

REACTIONS (29)
  - Drug interaction [Unknown]
  - Gastrointestinal disorder [Unknown]
  - Gastric disorder [Unknown]
  - Apparent death [Unknown]
  - Ulcer haemorrhage [Unknown]
  - Herpes ophthalmic [Unknown]
  - Adverse event [Unknown]
  - Gastric ulcer [Unknown]
  - Discomfort [Unknown]
  - Ligament sprain [Unknown]
  - Fall [Unknown]
  - Mental disorder [Unknown]
  - Oesophageal disorder [Unknown]
  - Dyspepsia [Unknown]
  - Diarrhoea [Recovering/Resolving]
  - Malaise [Unknown]
  - Vomiting [Unknown]
  - Muscle spasms [Recovered/Resolved]
  - Gastrooesophageal reflux disease [Unknown]
  - Constipation [Recovering/Resolving]
  - Nausea [Unknown]
  - Abdominal pain upper [Unknown]
  - Oral herpes [Unknown]
  - Oral herpes [Unknown]
  - Stress ulcer [Unknown]
  - Stress [Unknown]
  - Drug dose omission [Unknown]
  - Drug ineffective [Unknown]
  - Off label use [Unknown]
